FAERS Safety Report 5397262-3 (Version None)
Quarter: 2007Q3

REPORT INFORMATION
  Report Type: 
  Country: None (occurrence: None)
  Receive Date: 20070725
  Receipt Date: 20070713
  Transmission Date: 20080115
  Serious: Yes (Other)
  Sender: FDA-Public Use
  Company Number: US-PFIZER INC-2007059564

PATIENT
  Sex: Male
  Weight: 125 kg

DRUGS (9)
  1. EXUBERA [Suspect]
     Indication: BLOOD GLUCOSE ABNORMAL
     Dosage: DAILY DOSE:10MG
     Route: 048
  2. PLAVIX [Concomitant]
  3. COREG [Concomitant]
  4. AMARYL [Concomitant]
  5. CYMBALTA [Concomitant]
  6. VYTORIN [Concomitant]
  7. ISOSORBIDE MONONITRATE [Concomitant]
  8. LANTUS [Concomitant]
  9. PREVACID [Concomitant]

REACTIONS (1)
  - HAEMOPTYSIS [None]
